FAERS Safety Report 6774860-3 (Version None)
Quarter: 2010Q2

REPORT INFORMATION
  Report Type: 
  Country: None (occurrence: None)
  Receive Date: 20100617
  Receipt Date: 20100615
  Transmission Date: 20101027
  Serious: Yes (Hospitalization)
  Sender: FDA-Public Use
  Company Number: HK-ASTRAZENECA-2010SE27756

PATIENT
  Age: 12976 Day
  Sex: Female

DRUGS (9)
  1. SEROQUEL [Suspect]
     Indication: SCHIZOPHRENIA
     Route: 048
     Dates: start: 20091217, end: 20100103
  2. SEROQUEL [Suspect]
     Route: 048
     Dates: start: 20100105
  3. SEROQUEL [Suspect]
     Route: 048
     Dates: start: 20100106
  4. SEROQUEL [Suspect]
     Route: 048
     Dates: start: 20100112
  5. SEROQUEL [Suspect]
     Route: 048
     Dates: start: 20100209
  6. SEROQUEL [Suspect]
     Route: 048
     Dates: start: 20100531
  7. SEROQUEL [Suspect]
     Route: 048
     Dates: start: 20100602
  8. SEROQUEL [Suspect]
     Route: 048
     Dates: start: 20100610
  9. SEROQUEL [Suspect]
     Route: 048
     Dates: start: 20100611

REACTIONS (1)
  - SCHIZOPHRENIA, DISORGANISED TYPE [None]
